FAERS Safety Report 24694377 (Version 1)
Quarter: 2024Q4

REPORT INFORMATION
  Report Type: Spontaneous
  Country: CA (occurrence: CA)
  Receive Date: 20241204
  Receipt Date: 20241204
  Transmission Date: 20250115
  Serious: Yes (Other)
  Sender: JOHNSON AND JOHNSON
  Company Number: CA-KENVUE-20241000355

PATIENT
  Age: 2 Year
  Sex: Male

DRUGS (3)
  1. ACETAMINOPHEN\CAFFEINE [Suspect]
     Active Substance: ACETAMINOPHEN\CAFFEINE
     Indication: Accidental exposure to product
     Dosage: MOTHER DOES NOT KNOW HOW MANY CAPLETS HE INGESTED WHEN ASKED THE CHILD SAID TWO ONLY ONE TIME
     Dates: start: 20241004
  2. ACETAMINOPHEN\CAFFEINE [Suspect]
     Active Substance: ACETAMINOPHEN\CAFFEINE
     Indication: Accidental exposure to product
  3. CAFFEINE [Suspect]
     Active Substance: CAFFEINE
     Indication: Accidental exposure to product
     Route: 048
     Dates: start: 20241004

REACTIONS (6)
  - Seizure [Recovering/Resolving]
  - Failure of child resistant product closure [Unknown]
  - Accidental exposure to product by child [Unknown]
  - Oral mucosal erythema [Recovering/Resolving]
  - Adverse event [Recovering/Resolving]
  - Accidental exposure to product [Unknown]

NARRATIVE: CASE EVENT DATE: 20241004
